FAERS Safety Report 9900808 (Version 1)
Quarter: 2014Q1

REPORT INFORMATION
  Report Type: Spontaneous
  Country: DE (occurrence: DE)
  Receive Date: 20140217
  Receipt Date: 20140217
  Transmission Date: 20141002
  Serious: Yes (Other)
  Sender: FDA-Public Use
  Company Number: DE-DRREDDYS-GER/GER/14/0038098

PATIENT
  Age: 25 Year
  Sex: Female
  Weight: 80 kg

DRUGS (4)
  1. VENLAFAXINE [Suspect]
     Indication: DEPRESSION
     Route: 048
     Dates: start: 20120505, end: 20130124
  2. LAMOTRIGINE [Suspect]
     Indication: BIPOLAR DISORDER RELAPSE PROPHYLAXIS
     Route: 048
     Dates: start: 20120505, end: 20130124
  3. VOMEX A [Concomitant]
     Indication: VOMITING IN PREGNANCY
     Route: 048
  4. FOLSAURE [Concomitant]
     Indication: PROPHYLAXIS OF NEURAL TUBE DEFECT
     Route: 048
     Dates: end: 20120917

REACTIONS (3)
  - Premature rupture of membranes [Unknown]
  - Ventouse extraction [Unknown]
  - Exposure during pregnancy [Unknown]
